FAERS Safety Report 16963584 (Version 1)
Quarter: 2019Q4

REPORT INFORMATION
  Report Type: Report from Study
  Country: US (occurrence: US)
  Receive Date: 20191025
  Receipt Date: 20191025
  Transmission Date: 20200122
  Serious: Yes (Hospitalization, Other)
  Sender: FDA-Public Use
  Company Number: US-BRISTOL-MYERS SQUIBB COMPANY-BMS-2019-101527

PATIENT
  Age: 62 Year
  Sex: Male
  Weight: 130.6 kg

DRUGS (1)
  1. NIVOLUMAB [Suspect]
     Active Substance: NIVOLUMAB
     Indication: MALIGNANT MELANOMA
     Dosage: UNK
     Route: 065

REACTIONS (3)
  - Seizure [Unknown]
  - Cellulitis [Unknown]
  - Facial paralysis [Recovering/Resolving]

NARRATIVE: CASE EVENT DATE: 20191014
